FAERS Safety Report 8445902-4 (Version None)
Quarter: 2012Q2

REPORT INFORMATION
  Report Type: 
  Country: None (occurrence: None)
  Receive Date: 20120323
  Receipt Date: 20110825
  Transmission Date: 20120825
  Serious: Yes (Other)
  Sender: FDA-Public Use
  Company Number: 163-21880-11063810

PATIENT
  Age: 75 Year
  Sex: Male

DRUGS (1)
  1. REVLIMID [Suspect]
     Indication: MULTIPLE MYELOMA
     Dosage: 10 MG, QD X 21 DAYS, 1 WEEK, OFF, PO
     Route: 048
     Dates: start: 20100701, end: 20110601

REACTIONS (3)
  - NEOPLASM PROGRESSION [None]
  - MULTIPLE MYELOMA [None]
  - INTERNAL FIXATION OF FRACTURE [None]
